FAERS Safety Report 14761756 (Version 2)
Quarter: 2019Q1

REPORT INFORMATION
  Report Type: Report from Study
  Country: None (occurrence: BR)
  Receive Date: 20180416
  Receipt Date: 20190123
  Transmission Date: 20190417
  Serious: Yes (Disabling)
  Sender: FDA-Public Use
  Company Number: BR-ABBVIE-18K-020-2318361-00

PATIENT
  Age: 62 Year
  Sex: Female
  Weight: 65 kg

DRUGS (2)
  1. HUMIRA [Suspect]
     Active Substance: ADALIMUMAB
     Indication: ANKYLOSING SPONDYLITIS
     Route: 058
     Dates: start: 20180104, end: 20180330
  2. HUMIRA [Suspect]
     Active Substance: ADALIMUMAB
     Route: 058
     Dates: start: 2018, end: 2018

REACTIONS (18)
  - Fear [Unknown]
  - Wound [Unknown]
  - Pain in extremity [Unknown]
  - Tinea infection [Unknown]
  - Dry skin [Unknown]
  - Skin fissures [Recovered/Resolved]
  - Rash erythematous [Not Recovered/Not Resolved]
  - Skin wound [Recovered/Resolved]
  - Wound haemorrhage [Unknown]
  - Scab [Unknown]
  - Pruritus [Unknown]
  - Psoriasis [Unknown]
  - Dry skin [Unknown]
  - Skin wound [Recovered/Resolved]
  - Malaise [Unknown]
  - Skin wound [Recovered/Resolved]
  - Gait inability [Recovered/Resolved]
  - Skin plaque [Unknown]

NARRATIVE: CASE EVENT DATE: 2018
